FAERS Safety Report 8928768 (Version 1)
Quarter: 2012Q4

REPORT INFORMATION
  Report Type: Spontaneous
  Country: US (occurrence: None)
  Receive Date: 20121126
  Receipt Date: 20121126
  Transmission Date: 20130627
  Serious: Yes (Other)
  Sender: FDA-Public Use
  Company Number: None

PATIENT
  Age: 61 Year
  Sex: Male
  Weight: 85.1 kg

DRUGS (2)
  1. BENDAMUSTINE, 90 MG/M2 [Suspect]
     Indication: CLL
     Dates: start: 20111130, end: 20120509
  2. RITUXIMAB, 375 MG/M2 [Suspect]
     Indication: CLL
     Dates: start: 20111130, end: 20120509

REACTIONS (1)
  - Squamous cell carcinoma of skin [None]
